FAERS Safety Report 12140291 (Version 1)
Quarter: 2016Q1

REPORT INFORMATION
  Report Type: Spontaneous
  Country: US (occurrence: US)
  Receive Date: 20160303
  Receipt Date: 20160303
  Transmission Date: 20160526
  Serious: No
  Sender: FDA-Public Use
  Company Number: US-PFIZER INC-2016095313

PATIENT
  Age: 54 Year
  Sex: Female
  Weight: 99.34 kg

DRUGS (3)
  1. ALPRAZOLAM. [Suspect]
     Active Substance: ALPRAZOLAM
     Indication: PANIC ATTACK
  2. ALPRAZOLAM. [Suspect]
     Active Substance: ALPRAZOLAM
     Indication: PALPITATIONS
     Dosage: UNK
  3. DIOVAN HCT [Concomitant]
     Active Substance: HYDROCHLOROTHIAZIDE\VALSARTAN
     Indication: BLOOD PRESSURE ABNORMAL
     Dosage: [VALSARTAN 160]/[HYDROCHLOROTHIAZIDE 12.5]

REACTIONS (2)
  - Nervousness [Not Recovered/Not Resolved]
  - Drug ineffective [Unknown]
